FAERS Safety Report 8869590 (Version 1)
Quarter: 2012Q4

REPORT INFORMATION
  Report Type: 
  Country: US (occurrence: US)
  Receive Date: 20121026
  Receipt Date: 20121026
  Transmission Date: 20130627
  Serious: No
  Sender: FDA-Public Use
  Company Number: US-AMGEN-USASP2012042845

PATIENT
  Sex: Female
  Weight: 53.06 kg

DRUGS (8)
  1. ENBREL [Suspect]
     Indication: PRODUCT USED FOR UNKNOWN INDICATION
     Dosage: 50 mg/ml, qwk
     Route: 058
  2. ATIVAN [Concomitant]
     Dosage: 1 mg, UNK
  3. MOTRIN [Concomitant]
     Dosage: 400 mg, UNK
  4. AMPICILLIN [Concomitant]
     Dosage: 250 mg, UNK
  5. MULTIVITAMINS, PLAIN [Concomitant]
     Dosage: UNK
  6. ACIDOPHILUS [Concomitant]
     Dosage: UNK
  7. FOLIC ACID [Concomitant]
     Dosage: UNK
  8. PROBIOTIC [Concomitant]
     Dosage: UNK

REACTIONS (2)
  - Fatigue [Unknown]
  - Flatulence [Unknown]
